FAERS Safety Report 23840890 (Version 1)
Quarter: 2024Q2

REPORT INFORMATION
  Report Type: Spontaneous
  Country: CN (occurrence: CN)
  Receive Date: 20240510
  Receipt Date: 20240510
  Transmission Date: 20240716
  Serious: Yes (Hospitalization, Other)
  Sender: FDA-Public Use
  Company Number: None

PATIENT
  Age: 53 Year
  Sex: Female

DRUGS (4)
  1. CYCLOPHOSPHAMIDE [Suspect]
     Active Substance: CYCLOPHOSPHAMIDE
     Indication: Breast cancer female
     Dosage: 0.8G, ONE TIME IN ONE DAY, DILUTED WITH 250ML, SODIUM CHLORIDE(NS), AS A PART OF AC-TH REGIMEN
     Route: 041
     Dates: start: 20240420, end: 20240420
  2. SODIUM CHLORIDE [Suspect]
     Active Substance: SODIUM CHLORIDE
     Indication: Medication dilution
     Dosage: 250ML, ONE TIME IN ONE DAY, USED TO DILUTE 0.8G CYCLOPHOSPHAMIDE
     Route: 041
     Dates: start: 20240420, end: 20240420
  3. DEXTROSE [Suspect]
     Active Substance: DEXTROSE\DEXTROSE MONOHYDRATE
     Indication: Medication dilution
     Dosage: 250ML, ONE TIME IN ONE DAY, USED TO DILUTE 70 MG PIRARUBICIN HYDROCHLORIDE
     Route: 041
     Dates: start: 20240420, end: 20240420
  4. PIRARUBICIN HYDROCHLORIDE [Suspect]
     Active Substance: PIRARUBICIN HYDROCHLORIDE
     Indication: Breast cancer female
     Dosage: 70 MG, ONE TIME IN ONE DAY, DILUTED WITH 250ML, 5% GLUCOSE, AS A PART OF AC-TH REGIMEN
     Route: 041
     Dates: start: 20240420, end: 20240420

REACTIONS (1)
  - Myelosuppression [Unknown]

NARRATIVE: CASE EVENT DATE: 20240422
